APPROVED DRUG PRODUCT: CLAFORAN
Active Ingredient: CEFOTAXIME SODIUM
Strength: EQ 2GM BASE/VIAL
Dosage Form/Route: INJECTABLE;INJECTION
Application: A062659 | Product #002
Applicant: SANOFI AVENTIS US LLC
Approved: Jan 13, 1987 | RLD: No | RS: No | Type: DISCN